FAERS Safety Report 4268591-1 (Version None)
Quarter: 2004Q1

REPORT INFORMATION
  Report Type: 
  Country: None (occurrence: None)
  Receive Date: 20040112
  Receipt Date: 20040102
  Transmission Date: 20041129
  Serious: Yes (Death, Hospitalization)
  Sender: FDA-Public Use
  Company Number: US-GLAXOSMITHKLINE-A0491777A

PATIENT
  Age: 65 Year
  Sex: Male
  Weight: 109.1 kg

DRUGS (13)
  1. AVANDIA [Suspect]
     Indication: DIABETES MELLITUS
     Dates: start: 20000517
  2. HYZAAR [Concomitant]
  3. AMARYL [Concomitant]
     Indication: DIABETES MELLITUS
     Dosage: 2MG PER DAY
     Route: 048
  4. NOVOLIN [Concomitant]
     Indication: DIABETES MELLITUS
     Dosage: 50U TWICE PER DAY
     Route: 060
  5. ASPIRIN [Concomitant]
     Dosage: 325MG PER DAY
  6. CALCIUM [Concomitant]
  7. FLOMAX [Concomitant]
  8. FUROSEMIDE [Concomitant]
     Indication: CARDIAC FAILURE CONGESTIVE
  9. LIPITOR [Concomitant]
     Indication: BLOOD CHOLESTEROL INCREASED
     Dosage: 40MG PER DAY
  10. REGLAN [Concomitant]
     Dosage: 10MG TWICE PER DAY
     Route: 048
  11. TOPROL-XL [Concomitant]
     Indication: HYPERTENSION
     Dosage: 50MG IN THE MORNING
  12. TYLENOL [Concomitant]
     Route: 048
  13. VITAMIN C [Concomitant]

REACTIONS (13)
  - ANGIOPATHY [None]
  - APNOEA [None]
  - CARDIAC DISORDER [None]
  - CARDIAC FAILURE CONGESTIVE [None]
  - CARDIOMEGALY [None]
  - CORONARY ARTERY ATHEROSCLEROSIS [None]
  - ILEUS [None]
  - INTERCAPILLARY GLOMERULOSCLEROSIS [None]
  - PLEURAL EFFUSION [None]
  - PULMONARY OEDEMA [None]
  - PULSE ABSENT [None]
  - RENAL FAILURE ACUTE [None]
  - RENAL TUBULAR NECROSIS [None]
